FAERS Safety Report 9132305 (Version 2)
Quarter: 2013Q1

REPORT INFORMATION
  Report Type: Spontaneous
  Country: AU (occurrence: AU)
  Receive Date: 20130301
  Receipt Date: 20130315
  Transmission Date: 20140127
  Serious: Yes (Other)
  Sender: FDA-Public Use
  Company Number: PHHY2013AU020368

PATIENT
  Sex: Female

DRUGS (2)
  1. ACLASTA [Suspect]
     Dosage: 5 UKN, UNK
     Route: 042
     Dates: start: 20110112
  2. ACLASTA [Suspect]
     Dosage: 5 UKN, UNK
     Route: 042
     Dates: start: 20120228

REACTIONS (1)
  - Meningocele [Unknown]
